FAERS Safety Report 24844573 (Version 1)
Quarter: 2025Q1

REPORT INFORMATION
  Report Type: Spontaneous
  Country: IN (occurrence: IN)
  Receive Date: 20250115
  Receipt Date: 20250115
  Transmission Date: 20250409
  Serious: Yes (Other)
  Sender: MYLAN
  Company Number: IN-MYLANLABS-2025M1002867

PATIENT
  Age: 72 Year
  Sex: Male

DRUGS (4)
  1. OXALIPLATIN [Suspect]
     Active Substance: OXALIPLATIN
     Indication: Prophylactic chemotherapy
     Dosage: 85 MILLIGRAM/SQ. METER, BIWEEKLY, ADMINISTERED WITH FOLINIC-ACID OVER 2 HOURS
     Route: 042
  2. LEUCOVORIN [Concomitant]
     Active Substance: LEUCOVORIN\LEUCOVORIN CALCIUM
     Indication: Prophylactic chemotherapy
     Dosage: 200 MILLIGRAM/SQ. METER, BIWEEKLY, ADMINISTERED WITH OXALIPLATIN OVER 2 HOURS
     Route: 042
  3. FLUOROURACIL [Concomitant]
     Active Substance: FLUOROURACIL
     Indication: Prophylactic chemotherapy
     Dosage: 200 MILLIGRAM/SQ. METER, BIWEEKLY
     Route: 042
  4. DEXTROSE [Concomitant]
     Active Substance: DEXTROSE MONOHYDRATE
     Indication: Product used for unknown indication
     Dosage: UNK, Q2W
     Route: 042

REACTIONS (1)
  - Papilloedema [Recovering/Resolving]
